FAERS Safety Report 10437819 (Version 1)
Quarter: 2014Q3

REPORT INFORMATION
  Report Type: Spontaneous
  Country: US (occurrence: US)
  Receive Date: 20140908
  Receipt Date: 20140908
  Transmission Date: 20150326
  Serious: No
  Sender: FDA-Public Use
  Company Number: US-BRISTOL-MYERS SQUIBB COMPANY-20503389

PATIENT
  Age: 12 Year
  Sex: Male
  Weight: 99.77 kg

DRUGS (4)
  1. ABILIFY [Suspect]
     Active Substance: ARIPIPRAZOLE
     Dosage: 1 DF: HALF OF 10 MG TABLET
  2. TRILEPTAL [Concomitant]
     Active Substance: OXCARBAZEPINE
  3. ZOLOFT [Concomitant]
     Active Substance: SERTRALINE HYDROCHLORIDE
  4. STRATTERA [Concomitant]
     Active Substance: ATOMOXETINE HYDROCHLORIDE

REACTIONS (4)
  - Abnormal behaviour [Unknown]
  - Rash macular [Unknown]
  - Drug prescribing error [Unknown]
  - Drug dose omission [Unknown]
